FAERS Safety Report 16582823 (Version 1)
Quarter: 2019Q3

REPORT INFORMATION
  Report Type: Spontaneous
  Country: BA (occurrence: BA)
  Receive Date: 20190717
  Receipt Date: 20190717
  Transmission Date: 20191004
  Serious: Yes (Death, Other)
  Sender: FDA-Public Use
  Company Number: BA-TEVA-2019-BA-1077739

PATIENT
  Age: 6 Decade
  Sex: Female

DRUGS (4)
  1. CARBOPLATIN. [Suspect]
     Active Substance: CARBOPLATIN
     Indication: METASTATIC MALIGNANT MELANOMA
     Dosage: AUC 4 EVERY 3 WEEKS
     Route: 042
     Dates: start: 2012
  2. DACARBAZINE. [Suspect]
     Active Substance: DACARBAZINE
     Indication: METASTATIC MALIGNANT MELANOMA
     Dosage: FOR 5 DAYS EVERY 4 WEEKS
     Route: 042
     Dates: start: 201110, end: 201205
  3. PACLITAXEL. [Suspect]
     Active Substance: PACLITAXEL
     Indication: METASTATIC MALIGNANT MELANOMA
     Route: 042
     Dates: start: 2012
  4. ZOLEDRONIC ACID [Concomitant]
     Active Substance: ZOLEDRONIC ACID
     Indication: METASTASES TO BONE
     Route: 065
     Dates: start: 2012

REACTIONS (7)
  - Granulocytopenia [Unknown]
  - Nausea [Unknown]
  - Neuropathy peripheral [Unknown]
  - Hypokalaemia [Unknown]
  - Leukopenia [Unknown]
  - Anaemia [Unknown]
  - Hypocalcaemia [Unknown]
